FAERS Safety Report 6863783-7 (Version None)
Quarter: 2010Q3

REPORT INFORMATION
  Report Type: 
  Country: None (occurrence: None)
  Receive Date: 20100721
  Receipt Date: 20080325
  Transmission Date: 20110219
  Serious: No
  Sender: FDA-Public Use
  Company Number: US-PFIZER INC-2008022406

PATIENT
  Sex: Male
  Weight: 90.9 kg

DRUGS (7)
  1. CHANTIX [Suspect]
     Indication: SMOKING CESSATION THERAPY
     Dates: start: 20071214
  2. POTASSIUM CHLORIDE [Concomitant]
  3. LISINOPRIL [Concomitant]
  4. LASIX [Concomitant]
  5. TENORMIN [Concomitant]
  6. VALIUM [Concomitant]
  7. PERCOCET [Concomitant]

REACTIONS (1)
  - NAUSEA [None]
